FAERS Safety Report 9331844 (Version 1)
Quarter: 2013Q2

REPORT INFORMATION
  Report Type: Spontaneous
  Country: US (occurrence: US)
  Receive Date: 20130605
  Receipt Date: 20130605
  Transmission Date: 20140414
  Serious: No
  Sender: FDA-Public Use
  Company Number: US-ALEXION-A201301221

PATIENT
  Age: 58 Year
  Sex: Female
  Weight: 53.97 kg

DRUGS (6)
  1. SOLIRIS 300MG [Suspect]
     Indication: PAROXYSMAL NOCTURNAL HAEMOGLOBINURIA
     Dosage: 900 MG, Q2W
     Route: 042
  2. SOLIRIS 300MG [Suspect]
     Dosage: 1200 UNK, Q2W
     Route: 042
     Dates: start: 20130429
  3. LEVAQUIN [Concomitant]
     Indication: ANTIBIOTIC PROPHYLAXIS
  4. IRON [Concomitant]
  5. FOLIC ACID [Concomitant]
  6. VITAMIN B12 [Concomitant]

REACTIONS (6)
  - Abdominal pain upper [Unknown]
  - Migraine [Unknown]
  - Nausea [Unknown]
  - White blood cell count decreased [Not Recovered/Not Resolved]
  - Haemoglobin decreased [Recovering/Resolving]
  - Haematocrit decreased [Recovering/Resolving]
